FAERS Safety Report 25478065 (Version 1)
Quarter: 2025Q2

REPORT INFORMATION
  Report Type: Spontaneous
  Country: PL (occurrence: PL)
  Receive Date: 20250625
  Receipt Date: 20250625
  Transmission Date: 20250716
  Serious: Yes (Other)
  Sender: AUROBINDO
  Company Number: PL-MLMSERVICE-20250530-PI527659-00071-1

PATIENT
  Age: 5 Year
  Sex: Male
  Weight: 2.72 kg

DRUGS (2)
  1. BUDESONIDE [Suspect]
     Active Substance: BUDESONIDE
     Indication: Colitis microscopic
     Dosage: 9 MILLIGRAM, ONCE A DAY
     Route: 048
     Dates: start: 2022, end: 2022
  2. BUDESONIDE [Suspect]
     Active Substance: BUDESONIDE
     Dosage: 9 MILLIGRAM, EVERY OTHER DAY(REDUCE THE DOSE TO 9 MG EVERY OTHER DAY)
     Route: 048
     Dates: start: 2022

REACTIONS (2)
  - Growth retardation [Unknown]
  - Epiphyses delayed fusion [Unknown]
